FAERS Safety Report 5466921-6 (Version None)
Quarter: 2007Q3

REPORT INFORMATION
  Report Type: 
  Country: None (occurrence: None)
  Receive Date: 20070925
  Receipt Date: 20070914
  Transmission Date: 20080115
  Serious: Yes (Hospitalization)
  Sender: FDA-Public Use
  Company Number: FR-AMGEN-US100533

PATIENT
  Age: 52 Year
  Sex: Male

DRUGS (9)
  1. ENBREL [Suspect]
     Indication: PSORIATIC ARTHROPATHY
     Route: 058
     Dates: start: 20040529, end: 20040902
  2. ENBREL [Suspect]
     Indication: ANKYLOSING SPONDYLITIS
  3. CORTANCYL [Suspect]
     Indication: PSORIATIC ARTHROPATHY
     Route: 048
     Dates: end: 20050101
  4. CORTANCYL [Suspect]
     Indication: ANKYLOSING SPONDYLITIS
     Route: 048
     Dates: start: 20050101
  5. CORTANCYL [Suspect]
     Route: 048
  6. METHOTREXATE [Suspect]
     Indication: PSORIATIC ARTHROPATHY
     Route: 048
     Dates: start: 20040115
  7. METHOTREXATE [Suspect]
     Indication: ANKYLOSING SPONDYLITIS
     Route: 048
  8. METHOTREXATE [Suspect]
     Route: 048
  9. IRBESARTAN [Concomitant]
     Dosage: UNKNOWN
     Route: 048

REACTIONS (2)
  - CONDITION AGGRAVATED [None]
  - ECHINOCOCCIASIS [None]
